FAERS Safety Report 8718404 (Version 3)
Quarter: 2013Q3

REPORT INFORMATION
  Report Type: Report from Study
  Country: JP (occurrence: JP)
  Receive Date: 20120810
  Receipt Date: 20130909
  Transmission Date: 20140515
  Serious: Yes (Hospitalization)
  Sender: FDA-Public Use
  Company Number: JP-AMGEN-JPNCT2012050249

PATIENT
  Age: 79 Year
  Sex: Male
  Weight: 52 kg

DRUGS (30)
  1. DARBEPOETIN ALFA [Suspect]
     Indication: NEPHROGENIC ANAEMIA
     Dosage: 30 MUG, QD
     Route: 058
     Dates: start: 20110712
  2. DARBEPOETIN ALFA [Suspect]
     Dosage: 40 MUG, QD
     Route: 058
     Dates: start: 20110809, end: 20110809
  3. DARBEPOETIN ALFA [Suspect]
     Dosage: 40 MUG, QD
     Route: 058
     Dates: start: 20110913
  4. DARBEPOETIN ALFA [Suspect]
     Dosage: 60 MUG, QD
     Route: 058
     Dates: start: 20111011, end: 20111011
  5. DARBEPOETIN ALFA [Suspect]
     Dosage: 60 MUG, QD
     Route: 058
     Dates: start: 20111108, end: 20111108
  6. DARBEPOETIN ALFA [Suspect]
     Dosage: 60 MUG, QD
     Route: 058
     Dates: start: 20111213
  7. DARBEPOETIN ALFA [Suspect]
     Dosage: 60 MUG, Q4WK
     Route: 058
     Dates: start: 20120214, end: 20120703
  8. DARBEPOETIN ALFA [Suspect]
     Dosage: 60 MUG, Q4WK
     Route: 058
     Dates: start: 20120807, end: 20121002
  9. DARBEPOETIN ALFA [Suspect]
     Dosage: 60 MUG, Q4WK
     Route: 058
     Dates: start: 20121113, end: 20121211
  10. DARBEPOETIN ALFA [Suspect]
     Dosage: 30 MUG, QWK
     Route: 058
     Dates: start: 20130119, end: 20130214
  11. KREMEZIN [Concomitant]
     Dosage: UNK
     Route: 048
  12. EPADEL-S [Concomitant]
     Dosage: UNK
     Route: 048
  13. OMEPRAL [Concomitant]
     Dosage: UNK
     Route: 048
  14. VOGLIBOSE [Concomitant]
     Dosage: UNK
     Route: 048
  15. METHYCOBAL [Concomitant]
     Dosage: UNK
     Route: 048
  16. GASMOTIN [Concomitant]
     Dosage: UNK
     Route: 048
  17. ADALAT CR [Concomitant]
     Dosage: UNK
     Route: 048
  18. ATELEC [Concomitant]
     Dosage: UNK
     Route: 048
  19. BAYASPIRIN [Concomitant]
     Dosage: UNK
     Route: 048
  20. HARNAL [Concomitant]
     Dosage: UNK
     Route: 048
  21. CARDENALIN [Concomitant]
     Dosage: UNK
     Route: 048
  22. LASIX [Concomitant]
     Dosage: UNK
     Route: 048
  23. FRANDOL [Concomitant]
     Dosage: UNK
     Route: 062
  24. NORVASC [Concomitant]
     Dosage: UNK
     Route: 048
  25. URALYT [Concomitant]
     Dosage: UNK
     Route: 048
  26. ITOROL [Concomitant]
     Dosage: UNK
     Route: 048
  27. NATRIX [Concomitant]
     Dosage: UNK
     Route: 048
  28. LUPRAC [Concomitant]
     Dosage: UNK
     Route: 048
  29. PLAVIX [Concomitant]
     Dosage: UNK
     Route: 048
  30. MICARDIS [Concomitant]
     Dosage: UNK
     Route: 048

REACTIONS (3)
  - Cardiac failure acute [Recovered/Resolved]
  - Blood pressure increased [Recovered/Resolved]
  - Cardiac failure congestive [Recovered/Resolved]
